FAERS Safety Report 4367323-6 (Version None)
Quarter: 2004Q2

REPORT INFORMATION
  Report Type: 
  Country: None (occurrence: None)
  Receive Date: 20040528
  Receipt Date: 20040528
  Transmission Date: 20050107
  Serious: Yes (Death)
  Sender: FDA-Public Use
  Company Number: None

PATIENT
  Age: 84 Year
  Sex: Male
  Weight: 36.2878 kg

DRUGS (15)
  1. CISAPRIDE [Suspect]
     Indication: GASTROOESOPHAGEAL REFLUX DISEASE
     Dosage: 10 MG PO QID
     Route: 048
     Dates: start: 20020314, end: 20020513
  2. CISAPRIDE [Suspect]
     Indication: IMPAIRED GASTRIC EMPTYING
     Dosage: 10 MG PO QID
     Route: 048
     Dates: start: 20020314, end: 20020513
  3. VIT E [Concomitant]
  4. FOLIC ACID [Concomitant]
  5. THYROID TAB [Concomitant]
  6. VIT C [Concomitant]
  7. DURAGESIC [Concomitant]
  8. RESTORIL [Concomitant]
  9. MULTI-VITAMIN [Concomitant]
  10. MIACALCIN [Concomitant]
  11. CALCIUM AND VIT D [Concomitant]
  12. ALLEGRA [Concomitant]
  13. PRILOSEC [Concomitant]
  14. VANCENASE [Concomitant]
  15. TYLENOL W/ CODEINE NO. 3 [Concomitant]

REACTIONS (2)
  - CARDIAC FAILURE [None]
  - PNEUMONIA [None]
